FAERS Safety Report 9380676 (Version 4)
Quarter: 2013Q4

REPORT INFORMATION
  Report Type: Report from Study
  Country: JP (occurrence: JP)
  Receive Date: 20130702
  Receipt Date: 20131129
  Transmission Date: 20140711
  Serious: Yes (Hospitalization)
  Sender: FDA-Public Use
  Company Number: JP-JNJFOC-20130620147

PATIENT
  Age: 37 Year
  Sex: Male
  Weight: 75 kg

DRUGS (9)
  1. STELARA [Suspect]
     Indication: PUSTULAR PSORIASIS
     Route: 058
     Dates: start: 20120910
  2. STELARA [Suspect]
     Indication: PUSTULAR PSORIASIS
     Route: 058
     Dates: start: 20121013
  3. STELARA [Suspect]
     Indication: PUSTULAR PSORIASIS
     Route: 058
     Dates: start: 20130309
  4. STELARA [Suspect]
     Indication: PUSTULAR PSORIASIS
     Route: 058
     Dates: start: 20130704
  5. STELARA [Suspect]
     Indication: PUSTULAR PSORIASIS
     Route: 058
     Dates: start: 20121222
  6. DERMOVATE [Concomitant]
     Indication: PUSTULAR PSORIASIS
     Route: 062
  7. BONALFA [Concomitant]
     Indication: PUSTULAR PSORIASIS
     Route: 062
  8. TALION [Concomitant]
     Indication: PUSTULAR PSORIASIS
     Route: 048
     Dates: start: 201303
  9. FOSMICIN-S [Concomitant]
     Indication: ENTERITIS INFECTIOUS
     Route: 065
     Dates: start: 20130323, end: 20130325

REACTIONS (3)
  - Enteritis infectious [Recovering/Resolving]
  - Off label use [Unknown]
  - Drug effect incomplete [Unknown]
